FAERS Safety Report 5040230-1 (Version None)
Quarter: 2006Q2

REPORT INFORMATION
  Report Type: 
  Country: None (occurrence: None)
  Receive Date: 20060630
  Receipt Date: 20060616
  Transmission Date: 20061013
  Serious: Yes (Other)
  Sender: FDA-Public Use
  Company Number: CA-JNJFOC-20060603967

PATIENT
  Sex: Male

DRUGS (6)
  1. TYLENOL (CAPLET) [Suspect]
     Route: 048
  2. TYLENOL (CAPLET) [Suspect]
     Indication: DRUG USE FOR UNKNOWN INDICATION
     Route: 048
  3. METOPROLOL TARTRATE [Concomitant]
  4. ALTASE [Concomitant]
  5. NOVACIN [Concomitant]
  6. TEMAZEPAM [Concomitant]

REACTIONS (3)
  - DYSURIA [None]
  - MICTURITION URGENCY [None]
  - PAIN [None]
